FAERS Safety Report 15608531 (Version 1)
Quarter: 2018Q4

REPORT INFORMATION
  Report Type: Spontaneous
  Country: IN (occurrence: CN)
  Receive Date: 20181112
  Receipt Date: 20181112
  Transmission Date: 20190205
  Serious: Yes (Other)
  Sender: FDA-Public Use
  Company Number: IN-SA-2018SA299470

PATIENT
  Age: 30 Year
  Sex: Female

DRUGS (3)
  1. TRASTUZUMAB. [Suspect]
     Active Substance: TRASTUZUMAB
     Indication: ADENOCARCINOMA GASTRIC
     Dosage: 8 MG/M2, DAY 0 PRIOR TO TREATMENT INITIATION, 1ST COURSE 21 DAYS)+6 MG/M2 (DAY 0, 2-7 COURSES, 21 DA
     Dates: start: 2017
  2. CAPECITABINE. [Suspect]
     Active Substance: CAPECITABINE
     Indication: ADENOCARCINOMA GASTRIC
     Dosage: 1000 MG/M2, DAYS 1-14
     Dates: start: 2017
  3. OXALIPLATIN. [Suspect]
     Active Substance: OXALIPLATIN
     Indication: ADENOCARCINOMA GASTRIC
     Dosage: 130 MG/M2, DAY 1
     Dates: start: 2017

REACTIONS (3)
  - Therapeutic response decreased [Unknown]
  - Disease progression [Unknown]
  - Adenocarcinoma gastric [Unknown]

NARRATIVE: CASE EVENT DATE: 2017
